FAERS Safety Report 16843798 (Version 1)
Quarter: 2019Q3

REPORT INFORMATION
  Report Type: Spontaneous
  Country: US (occurrence: US)
  Receive Date: 20190924
  Receipt Date: 20190924
  Transmission Date: 20191005
  Serious: No
  Sender: FDA-Public Use
  Company Number: US-GLAXOSMITHKLINE-US2019169594

PATIENT
  Age: 43 Year
  Sex: Female

DRUGS (2)
  1. ABREVA [Suspect]
     Active Substance: DOCOSANOL
     Dosage: 5 TIMES
     Dates: start: 20190913
  2. ABREVA [Suspect]
     Active Substance: DOCOSANOL
     Indication: ORAL HERPES
     Dosage: 4-5 TIMES
     Route: 061
     Dates: start: 20190817

REACTIONS (2)
  - Incorrect product administration duration [Unknown]
  - Inappropriate schedule of product administration [Unknown]
